FAERS Safety Report 9839261 (Version 1)
Quarter: 2014Q1

REPORT INFORMATION
  Report Type: Spontaneous
  Country: US (occurrence: None)
  Receive Date: 20140116
  Receipt Date: 20140116
  Transmission Date: 20141002
  Serious: Yes (Hospitalization)
  Sender: FDA-Public Use
  Company Number: 2014AP000184

PATIENT
  Age: 69 Year
  Sex: Female

DRUGS (16)
  1. FLUOXETINE HYDROCHLORIDE [Suspect]
     Dosage: 20 MG;QD; UNK
  2. CIMETIDINE [Suspect]
     Dosage: 300 MG; QD; UNK
  3. RANEXA [Suspect]
     Indication: ANGINA PECTORIS
     Dosage: 500 MG; QD; UNK
  4. BUMETANIDE [Suspect]
     Dosage: 1 MG; QD; UNK
  5. ATORVASTATIN [Concomitant]
  6. POTASSIUM CHLORIDE [Concomitant]
  7. LOSARTAN [Concomitant]
  8. AMLODIPINE [Concomitant]
  9. ALPRAZOLAM [Concomitant]
  10. ATENOLOL [Concomitant]
  11. ISOSORBIDE [Concomitant]
  12. CLOPIDOGREL [Concomitant]
  13. BREVA [Concomitant]
  14. MELOXICAM [Concomitant]
  15. PANTOPRAZOLE [Concomitant]
  16. NITROGLYCERIN [Concomitant]

REACTIONS (5)
  - Hypokalaemia [None]
  - Torsade de pointes [None]
  - Hypomagnesaemia [None]
  - Cardiac arrest [None]
  - Potentiating drug interaction [None]
